FAERS Safety Report 20891234 (Version 1)
Quarter: 2022Q2

REPORT INFORMATION
  Report Type: Spontaneous
  Country: CN (occurrence: CN)
  Receive Date: 20220530
  Receipt Date: 20220530
  Transmission Date: 20220721
  Serious: Yes (Other)
  Sender: FDA-Public Use
  Company Number: CN-ORGANON-O2205CHN002060

PATIENT
  Age: 67 Year
  Sex: Female
  Weight: 50 kg

DRUGS (3)
  1. DIPROSPAN [Suspect]
     Active Substance: BETAMETHASONE DIPROPIONATE\BETAMETHASONE SODIUM PHOSPHATE
     Indication: Rheumatoid arthritis
     Dosage: 1 MILLILITER, QD
     Route: 014
     Dates: start: 20220517, end: 20220517
  2. METHOTREXATE [Suspect]
     Active Substance: METHOTREXATE
     Indication: Rheumatoid arthritis
     Dosage: 10 MILLIGRAM, QD
     Route: 030
     Dates: start: 20220517, end: 20220517
  3. STERILE WATER [Concomitant]
     Active Substance: WATER
     Indication: Vehicle solution use
     Dosage: 2 MILLILITER, QD
     Route: 030
     Dates: start: 20220517, end: 20220517

REACTIONS (5)
  - Chills [Recovered/Resolved]
  - Tremor [Recovered/Resolved]
  - Lip discolouration [Recovered/Resolved]
  - Flushing [Recovered/Resolved]
  - Blood pressure decreased [Recovered/Resolved]

NARRATIVE: CASE EVENT DATE: 20220518
